FAERS Safety Report 18478430 (Version 3)
Quarter: 2021Q1

REPORT INFORMATION
  Report Type: Spontaneous
  Country: US (occurrence: US)
  Receive Date: 20201109
  Receipt Date: 20210112
  Transmission Date: 20210419
  Serious: No
  Sender: FDA-Public Use
  Company Number: US-BIOGEN-2020BI00943704

PATIENT
  Sex: Female

DRUGS (2)
  1. TYSABRI [Suspect]
     Active Substance: NATALIZUMAB
     Indication: MULTIPLE SCLEROSIS
     Route: 065
     Dates: start: 20201023
  2. TYSABRI [Suspect]
     Active Substance: NATALIZUMAB
     Dosage: 300MG/15ML
     Route: 065
     Dates: start: 202011

REACTIONS (7)
  - Pain of skin [Unknown]
  - Swelling face [Unknown]
  - Swelling [Unknown]
  - Peripheral swelling [Unknown]
  - Abdominal distension [Unknown]
  - Hyperaesthesia [Unknown]
  - Liver function test increased [Unknown]
